FAERS Safety Report 24210066 (Version 1)
Quarter: 2024Q3

REPORT INFORMATION
  Report Type: Spontaneous
  Country: MX (occurrence: MX)
  Receive Date: 20240814
  Receipt Date: 20240814
  Transmission Date: 20241017
  Serious: Yes (Other)
  Sender: Karo Pharma
  Company Number: MX-Karo Pharma-2159947

PATIENT
  Age: 10 Year
  Sex: Male

DRUGS (2)
  1. TERBINAFINE [Suspect]
     Active Substance: TERBINAFINE
     Indication: Fungal infection
     Route: 061
  2. VORICONAZOLE [Concomitant]
     Active Substance: VORICONAZOLE

REACTIONS (3)
  - Eustachian tube disorder [Unknown]
  - Infection [Unknown]
  - Cholesteatoma [Unknown]
